FAERS Safety Report 18327774 (Version 2)
Quarter: 2020Q4

REPORT INFORMATION
  Report Type: Spontaneous
  Country: DE (occurrence: DE)
  Receive Date: 20200930
  Receipt Date: 20201007
  Transmission Date: 20210113
  Serious: Yes (Hospitalization)
  Sender: FDA-Public Use
  Company Number: DE-AUROBINDO-AUR-APL-2020-049772

PATIENT
  Age: 77 Year
  Sex: Female
  Weight: 71 kg

DRUGS (5)
  1. DEKRISTOL [Suspect]
     Active Substance: CHOLECALCIFEROL
     Indication: VITAMIN D DEFICIENCY
     Dosage: 20000 INTERNATIONAL UNIT, EVERY WEEK
     Route: 065
  2. TILIDIN [Concomitant]
     Active Substance: NALOXONE HYDROCHLORIDE\TILIDINE HYDROCHLORIDE
     Indication: PAIN MANAGEMENT
     Dosage: 50 MILLIGRAM (1 - 3 TIMES A DAY)
     Route: 048
     Dates: start: 201811, end: 201908
  3. NASIVIN [Concomitant]
     Active Substance: OXYMETAZOLINE
     Indication: NASAL CONGESTION
     Dosage: UNK (1-3 TIMES A DAY)
     Route: 045
     Dates: start: 201804, end: 201908
  4. DICLOFENAC [Concomitant]
     Active Substance: DICLOFENAC
     Indication: MYALGIA
     Dosage: 1 DOSAGE FORM, ONCE A DAY
     Route: 048
     Dates: start: 201804, end: 201911
  5. RISEDRONATE AUROBINDO FILM-COATED TABLET [Suspect]
     Active Substance: RISEDRONATE SODIUM
     Indication: OSTEOPOROSIS
     Dosage: 35 MILLIGRAM, EVERY WEEK
     Route: 065

REACTIONS (2)
  - Apathy [Recovered/Resolved]
  - Visual impairment [Recovered/Resolved]

NARRATIVE: CASE EVENT DATE: 20200101
